FAERS Safety Report 8160696-8 (Version None)
Quarter: 2012Q1

REPORT INFORMATION
  Report Type: 
  Country: None (occurrence: None)
  Receive Date: 20120223
  Receipt Date: 20120213
  Transmission Date: 20120608
  Serious: Yes (Hospitalization, Other)
  Sender: FDA-Public Use
  Company Number: PHHY2012DE012790

PATIENT
  Sex: Female

DRUGS (9)
  1. ESTRADERM [Suspect]
     Indication: HORMONE REPLACEMENT THERAPY
     Dosage: 1 PATCH EVERY 3 OR 4 DAYSS
     Route: 062
     Dates: start: 20110901, end: 20120131
  2. ALLOPURINOL [Concomitant]
     Indication: HYPERURICAEMIA
     Route: 048
  3. LASIX [Concomitant]
     Indication: PLEURAL EFFUSION
     Route: 048
  4. XIPAMIDE [Concomitant]
     Indication: PLEURAL EFFUSION
     Route: 048
  5. XIPAMIDE [Concomitant]
     Indication: OEDEMA
  6. ESTRADERM [Suspect]
     Indication: MENOPAUSAL SYMPTOMS
  7. LASIX [Concomitant]
     Indication: OEDEMA
  8. SPIRONOLACTONE [Concomitant]
     Indication: OEDEMA
  9. SPIRONOLACTONE [Concomitant]
     Indication: PLEURAL EFFUSION
     Route: 048

REACTIONS (2)
  - GASTROINTESTINAL INFECTION [None]
  - PLEURAL EFFUSION [None]
